FAERS Safety Report 5014003-X (Version None)
Quarter: 2006Q2

REPORT INFORMATION
  Report Type: 
  Country: None (occurrence: None)
  Receive Date: 20060525
  Receipt Date: 20060516
  Transmission Date: 20061013
  Serious: Yes (Other)
  Sender: FDA-Public Use
  Company Number: HQWYE394718MAY06

PATIENT
  Sex: 0

DRUGS (2)
  1. EFFEXOR XR [Suspect]
     Dosage: 150 MG, ORAL
     Route: 048
  2. MEMANTINE HCL [Suspect]

REACTIONS (2)
  - DRUG INTERACTION [None]
  - SUICIDAL IDEATION [None]
